FAERS Safety Report 9773329 (Version 3)
Quarter: 2014Q2

REPORT INFORMATION
  Report Type: Report from Study
  Country: US (occurrence: US)
  Receive Date: 20131219
  Receipt Date: 20140623
  Transmission Date: 20141212
  Serious: Yes (Hospitalization)
  Sender: FDA-Public Use
  Company Number: US-ABBVIE-13P-163-1163306-00

PATIENT
  Age: 54 Year
  Sex: Female

DRUGS (13)
  1. HUMIRA [Suspect]
     Indication: CROHN^S DISEASE
     Dates: start: 20130914, end: 20131129
  2. APRISO [Concomitant]
     Indication: CROHN^S DISEASE
     Dosage: PILLS, IN AM
  3. ENTOCORT GENERIC [Concomitant]
     Indication: CROHN^S DISEASE
     Dosage: PILLS
  4. OMEPRAZOLE [Concomitant]
     Indication: GASTRITIS
  5. LISINOPRIL [Concomitant]
     Indication: BLOOD PRESSURE INCREASED
  6. SIMVASTATIN [Concomitant]
     Indication: BLOOD CHOLESTEROL INCREASED
  7. TIZANIDINE [Concomitant]
     Indication: MUSCLE RELAXANT THERAPY
  8. TIZANIDINE [Concomitant]
     Indication: BACK DISORDER
  9. PROMETHAZINE [Concomitant]
     Indication: NAUSEA
  10. SUPER B COMPLEX [Concomitant]
     Indication: ROUTINE HEALTH MAINTENANCE
  11. PERCOCET [Concomitant]
     Indication: BACK PAIN
  12. FENTANYL [Concomitant]
     Indication: PRODUCT USED FOR UNKNOWN INDICATION
  13. ZOCOR [Concomitant]
     Indication: BLOOD CHOLESTEROL

REACTIONS (8)
  - Blood potassium decreased [Recovering/Resolving]
  - Diarrhoea [Not Recovered/Not Resolved]
  - Dehydration [Recovering/Resolving]
  - Weight decreased [Not Recovered/Not Resolved]
  - Decreased appetite [Not Recovered/Not Resolved]
  - Nausea [Not Recovered/Not Resolved]
  - Drug ineffective [Recovering/Resolving]
  - Gastrointestinal erosion [Unknown]
